FAERS Safety Report 8172850-X (Version None)
Quarter: 2012Q1

REPORT INFORMATION
  Report Type: 
  Country: None (occurrence: None)
  Receive Date: 20120229
  Receipt Date: 20120229
  Transmission Date: 20120608
  Serious: No
  Sender: FDA-Public Use
  Company Number: None

PATIENT
  Sex: Female
  Weight: 72.121 kg

DRUGS (5)
  1. AVASTIN [Concomitant]
  2. FLU SHOT [Concomitant]
  3. LEUCOVORIN CALCIUM [Concomitant]
  4. FLUOROURACIL [Concomitant]
  5. ELOXATIN [Suspect]
     Indication: COLON CANCER
     Dosage: 160MG
     Route: 041
     Dates: start: 20120123, end: 20120220

REACTIONS (2)
  - DYSPNOEA [None]
  - HYPOAESTHESIA [None]
